FAERS Safety Report 17137829 (Version 2)
Quarter: 2020Q1

REPORT INFORMATION
  Report Type: Spontaneous
  Country: US (occurrence: US)
  Receive Date: 20191211
  Receipt Date: 20200107
  Transmission Date: 20200409
  Serious: No
  Sender: FDA-Public Use
  Company Number: US-ELI_LILLY_AND_COMPANY-US201912003618

PATIENT
  Age: 69 Year
  Sex: Female

DRUGS (2)
  1. HUMALOG [Suspect]
     Active Substance: INSULIN LISPRO
     Indication: DIABETES MELLITUS
     Dosage: 10 U, UNKNOWN
     Route: 058
  2. HUMALOG [Suspect]
     Active Substance: INSULIN LISPRO
     Dosage: UNK
     Route: 058

REACTIONS (10)
  - Asthma [Unknown]
  - Hypersensitivity [Unknown]
  - Respiration abnormal [Unknown]
  - Infection [Recovering/Resolving]
  - Diarrhoea [Recovering/Resolving]
  - Eating disorder [Recovering/Resolving]
  - Dysphonia [Recovering/Resolving]
  - Dry eye [Unknown]
  - Blood glucose increased [Recovering/Resolving]
  - Malaise [Recovering/Resolving]

NARRATIVE: CASE EVENT DATE: 201909
